FAERS Safety Report 4917334-4 (Version None)
Quarter: 2006Q1

REPORT INFORMATION
  Report Type: 
  Country: None (occurrence: None)
  Receive Date: 20060221
  Receipt Date: 20050602
  Transmission Date: 20060701
  Serious: Yes (Death)
  Sender: FDA-Public Use
  Company Number: US-MERCK-0506USA00843

PATIENT
  Age: 56 Year
  Sex: Male

DRUGS (1)
  1. VIOXX [Suspect]
     Indication: PAIN IN EXTREMITY
     Route: 048
     Dates: start: 20020301, end: 20030208

REACTIONS (6)
  - BLOOD TRIGLYCERIDES [None]
  - CARDIAC ARREST [None]
  - DIABETES MELLITUS [None]
  - HYPERTRIGLYCERIDAEMIA [None]
  - NEUROPATHY [None]
  - SUDDEN CARDIAC DEATH [None]
